FAERS Safety Report 12631698 (Version 2)
Quarter: 2016Q3

REPORT INFORMATION
  Report Type: Spontaneous
  Country: US (occurrence: US)
  Receive Date: 20160808
  Receipt Date: 20160808
  Transmission Date: 20161109
  Serious: No
  Sender: FDA-Public Use
  Company Number: US-BEH-2015055365

PATIENT
  Sex: Female
  Weight: 119 kg

DRUGS (49)
  1. HIZENTRA [Suspect]
     Active Substance: HUMAN IMMUNOGLOBULIN G
     Dosage: 1GM 5ML
     Route: 058
  2. BUSPIRONE [Concomitant]
     Active Substance: BUSPIRONE HYDROCHLORIDE
  3. CLONAZEPAM. [Concomitant]
     Active Substance: CLONAZEPAM
  4. WELLBUTRIN SR [Concomitant]
     Active Substance: BUPROPION HYDROCHLORIDE
  5. PULMICORT TURBUHALER [Concomitant]
     Active Substance: BUDESONIDE
  6. MIRALAX [Concomitant]
     Active Substance: POLYETHYLENE GLYCOL 3350
  7. ESTRADIOL VALERATE. [Concomitant]
     Active Substance: ESTRADIOL VALERATE
  8. TYLENOL WITH CODEINE [Concomitant]
     Active Substance: ACETAMINOPHEN\CODEINE PHOSPHATE
  9. MUCINEX DM ER [Concomitant]
  10. LAXATIVES [Concomitant]
     Active Substance: UNSPECIFIED INGREDIENT
  11. KLONOPIN [Concomitant]
     Active Substance: CLONAZEPAM
  12. LASIX [Concomitant]
     Active Substance: FUROSEMIDE
  13. LOTRIM ULTRA 1% CREAM [Concomitant]
  14. DIPHENHYDRAMINE. [Concomitant]
     Active Substance: DIPHENHYDRAMINE
  15. SYNTHROID [Concomitant]
     Active Substance: LEVOTHYROXINE SODIUM
  16. ALLEGRA-D [Concomitant]
     Active Substance: FEXOFENADINE\PSEUDOEPHEDRINE
  17. ZOFRAN [Concomitant]
     Active Substance: ONDANSETRON HYDROCHLORIDE
  18. VITAMIN D3 [Concomitant]
     Active Substance: CHOLECALCIFEROL
  19. HIZENTRA [Suspect]
     Active Substance: HUMAN IMMUNOGLOBULIN G
     Route: 058
  20. DOXYCYCLINE. [Concomitant]
     Active Substance: DOXYCYCLINE
  21. LEVOTHYROXINE. [Concomitant]
     Active Substance: LEVOTHYROXINE
  22. RIBOFLAVIN [Concomitant]
     Active Substance: RIBOFLAVIN
  23. ACETAMINOPHEN. [Concomitant]
     Active Substance: ACETAMINOPHEN
  24. PREDNISONE. [Concomitant]
     Active Substance: PREDNISONE
  25. TIZANIDINE. [Concomitant]
     Active Substance: TIZANIDINE
  26. FUROSEMIDE. [Concomitant]
     Active Substance: FUROSEMIDE
  27. OMEPRAZOLE. [Concomitant]
     Active Substance: OMEPRAZOLE
  28. VITAMIN B12 [Concomitant]
     Active Substance: CYANOCOBALAMIN
  29. POTASSIUM CITRATE. [Concomitant]
     Active Substance: POTASSIUM CITRATE
  30. DUONEB [Concomitant]
     Active Substance: ALBUTEROL SULFATE\IPRATROPIUM BROMIDE
  31. ALBUTEROL SULF HFA [Concomitant]
  32. HIZENTRA [Suspect]
     Active Substance: HUMAN IMMUNOGLOBULIN G
     Dosage: AS DIRECTED
     Route: 058
  33. EPIPEN [Concomitant]
     Active Substance: EPINEPHRINE
  34. ANTIDEPRESSANTS [Concomitant]
     Active Substance: UNSPECIFIED INGREDIENT
  35. CALCIUM CARBONATE. [Concomitant]
     Active Substance: CALCIUM CARBONATE
  36. B-COMPLEX VITAMINS PLUS [Concomitant]
  37. HIZENTRA [Suspect]
     Active Substance: HUMAN IMMUNOGLOBULIN G
     Dosage: 2GM 10ML
     Route: 058
  38. HYDROXYZINE HCL [Concomitant]
     Active Substance: HYDROXYZINE HYDROCHLORIDE
  39. ZITHROMAX [Concomitant]
     Active Substance: AZITHROMYCIN DIHYDRATE
  40. MEGA MULTIVITAMIN [Concomitant]
  41. ADVAIR HFA [Concomitant]
     Active Substance: FLUTICASONE PROPIONATE\SALMETEROL XINAFOATE
  42. PRILOSEC [Concomitant]
     Active Substance: OMEPRAZOLE MAGNESIUM
  43. SENNA-DOCUSATE SODIUM [Concomitant]
  44. TOVIAZ [Concomitant]
     Active Substance: FESOTERODINE FUMARATE
  45. NASONEX [Concomitant]
     Active Substance: MOMETASONE FUROATE
  46. HIZENTRA [Suspect]
     Active Substance: HUMAN IMMUNOGLOBULIN G
     Indication: IMMUNODEFICIENCY COMMON VARIABLE
     Route: 058
  47. HIZENTRA [Suspect]
     Active Substance: HUMAN IMMUNOGLOBULIN G
     Route: 058
  48. TESSALON [Concomitant]
     Active Substance: BENZONATATE
  49. SONATA [Concomitant]
     Active Substance: ZALEPLON

REACTIONS (1)
  - Sinusitis [Unknown]
